FAERS Safety Report 18175666 (Version 2)
Quarter: 2021Q1

REPORT INFORMATION
  Report Type: Spontaneous
  Country: US (occurrence: US)
  Receive Date: 20200820
  Receipt Date: 20210308
  Transmission Date: 20210419
  Serious: Yes (Other)
  Sender: FDA-Public Use
  Company Number: US-ELI_LILLY_AND_COMPANY-US202008007841

PATIENT
  Age: 11 Year
  Sex: Male

DRUGS (2)
  1. ATOMOXETINE HYDROCHLORIDE 10MG [Suspect]
     Active Substance: ATOMOXETINE HYDROCHLORIDE
     Indication: ATTENTION DEFICIT HYPERACTIVITY DISORDER
     Dosage: 10 MG, UNKNOWN
     Route: 048
     Dates: start: 201911
  2. ATOMOXETINE HYDROCHLORIDE 10MG [Suspect]
     Active Substance: ATOMOXETINE HYDROCHLORIDE
     Dosage: 80 MG, DAILY
     Route: 048

REACTIONS (12)
  - Visual impairment [Unknown]
  - Depression [Unknown]
  - Tinnitus [Unknown]
  - Abdominal discomfort [Unknown]
  - Urticaria [Unknown]
  - Heart rate irregular [Unknown]
  - Insomnia [Unknown]
  - Suicidal ideation [Unknown]
  - Constipation [Unknown]
  - Decreased appetite [Unknown]
  - Dizziness [Unknown]
  - Nausea [Unknown]

NARRATIVE: CASE EVENT DATE: 201911
